FAERS Safety Report 21714587 (Version 9)
Quarter: 2023Q4

REPORT INFORMATION
  Report Type: Report from Study
  Country: NL (occurrence: NL)
  Receive Date: 20221212
  Receipt Date: 20231215
  Transmission Date: 20240110
  Serious: Yes (Death, Hospitalization, Other)
  Sender: FDA-Public Use
  Company Number: NL-ABBVIE-4231636

PATIENT
  Sex: Male

DRUGS (6)
  1. CARBIDOPA\LEVODOPA [Suspect]
     Active Substance: CARBIDOPA\LEVODOPA
     Indication: Parkinson^s disease
     Dosage: REMAINS AT 16 HOURS, MD: 12.0 ML, CD: 3.4 ML/H, ED: 3.0 ML
     Route: 050
     Dates: start: 20200317
  2. CARBIDOPA\LEVODOPA [Suspect]
     Active Substance: CARBIDOPA\LEVODOPA
     Dosage: MD: 12.0 ML, CD: 3.4 ML/H, ED: 3.0 MLREMAINS AT 16 HOURS
     Route: 050
     Dates: start: 20230424, end: 20230712
  3. CARBIDOPA\LEVODOPA [Suspect]
     Active Substance: CARBIDOPA\LEVODOPA
     Dosage: MD: 12.0 ML, CD: 3.4 ML/H, ED: 3.0 ML?REMAINS AT 16 HOURS
     Route: 050
     Dates: start: 20230712, end: 20231003
  4. CARBIDOPA\LEVODOPA [Suspect]
     Active Substance: CARBIDOPA\LEVODOPA
     Dosage: REMAINS AT 16 HOURS
     Route: 050
  5. CARBIDOPA\LEVODOPA [Suspect]
     Active Substance: CARBIDOPA\LEVODOPA
     Dosage: REMAINS AT 16 HOURS
     Route: 050
  6. CARBIDOPA\LEVODOPA [Suspect]
     Active Substance: CARBIDOPA\LEVODOPA
     Dosage: MD: 4.0ML, CD: 3.4ML/H, ED: 3.0ML?: REMAINS AT 16 HOURS
     Route: 050
     Dates: start: 20231003, end: 20231031

REACTIONS (25)
  - Pneumatosis intestinalis [Fatal]
  - Head injury [Not Recovered/Not Resolved]
  - Gait disturbance [Not Recovered/Not Resolved]
  - Ocular neoplasm [Not Recovered/Not Resolved]
  - Distributive shock [Fatal]
  - On and off phenomenon [Not Recovered/Not Resolved]
  - Fall [Recovered/Resolved]
  - Muscle rigidity [Not Recovered/Not Resolved]
  - Dysstasia [Not Recovered/Not Resolved]
  - Asthenia [Not Recovered/Not Resolved]
  - Rehabilitation therapy [Not Recovered/Not Resolved]
  - Mobility decreased [Unknown]
  - Anaemia [Unknown]
  - Ageusia [Not Recovered/Not Resolved]
  - Salivary gland cancer [Not Recovered/Not Resolved]
  - Device breakage [Not Recovered/Not Resolved]
  - Infrequent bowel movements [Recovered/Resolved]
  - Transfusion [Not Recovered/Not Resolved]
  - Intentional product misuse [Not Recovered/Not Resolved]
  - Bowel movement irregularity [Not Recovered/Not Resolved]
  - Salivary gland neoplasm [Not Recovered/Not Resolved]
  - Haemoglobin decreased [Recovering/Resolving]
  - Underdose [Not Recovered/Not Resolved]
  - Weight decreased [Not Recovered/Not Resolved]
  - Dyskinesia [Not Recovered/Not Resolved]

NARRATIVE: CASE EVENT DATE: 20221205
